FAERS Safety Report 22784387 (Version 12)
Quarter: 2024Q2

REPORT INFORMATION
  Report Type: Report from Study
  Country: US (occurrence: US)
  Receive Date: 20230803
  Receipt Date: 20240607
  Transmission Date: 20240716
  Serious: Yes (Hospitalization, Other)
  Sender: FDA-Public Use
  Company Number: US-ACADIA PHARMACEUTICALS INC.-ACA-2023-TRF-002920

PATIENT
  Sex: Female

DRUGS (8)
  1. DAYBUE [Suspect]
     Active Substance: TROFINETIDE
     Indication: Rett syndrome
     Dosage: 40 MILLILITER, BID
  2. DAYBUE [Suspect]
     Active Substance: TROFINETIDE
     Dosage: 25ML IN THE MORNINGS AND 20ML IN EVENINGS
  3. DAYBUE [Suspect]
     Active Substance: TROFINETIDE
     Dosage: 20 ML IN MORNING, 25 ML IN EVENING
  4. DAYBUE [Suspect]
     Active Substance: TROFINETIDE
     Dosage: 45ML TOTAL DAILY
  5. DAYBUE [Suspect]
     Active Substance: TROFINETIDE
     Dosage: 20 MILLILITER, BID
  6. DAYBUE [Suspect]
     Active Substance: TROFINETIDE
     Dosage: 20 ML IN MORNING AND 25 ML IN NIGHT
  7. DAYBUE [Suspect]
     Active Substance: TROFINETIDE
     Dosage: 25 MILLILITER, BID
  8. DAYBUE [Suspect]
     Active Substance: TROFINETIDE
     Dosage: 30 MILLILITER, BID, VIA G TUBE

REACTIONS (19)
  - Faeces soft [Not Recovered/Not Resolved]
  - Seizure [Recovering/Resolving]
  - Nasopharyngitis [Not Recovered/Not Resolved]
  - Seizure [Not Recovered/Not Resolved]
  - Faeces soft [Recovering/Resolving]
  - Urticaria [Not Recovered/Not Resolved]
  - Product container seal issue [Not Recovered/Not Resolved]
  - Faeces soft [Not Recovered/Not Resolved]
  - Bruxism [Unknown]
  - Drooling [Unknown]
  - Eczema [Not Recovered/Not Resolved]
  - Flatulence [Not Recovered/Not Resolved]
  - Abdominal distension [Unknown]
  - Underdose [Not Recovered/Not Resolved]
  - Muscle spasms [Unknown]
  - Diarrhoea [Not Recovered/Not Resolved]
  - Diarrhoea [Not Recovered/Not Resolved]
  - Vomiting [Not Recovered/Not Resolved]
  - Diarrhoea [Not Recovered/Not Resolved]
